FAERS Safety Report 6900788-1 (Version None)
Quarter: 2010Q3

REPORT INFORMATION
  Report Type: 
  Country: None (occurrence: None)
  Receive Date: 20100730
  Receipt Date: 20100719
  Transmission Date: 20110219
  Serious: Yes (Disabling)
  Sender: FDA-Public Use
  Company Number: 2010MA001009

PATIENT
  Age: 60 Year
  Sex: Female

DRUGS (3)
  1. FEVERALL [Suspect]
     Indication: PAIN
     Dosage: 1 GM;QD;PO
     Route: 048
     Dates: start: 20020919, end: 20020919
  2. HEXAPINDOL [Concomitant]
  3. PREV MEDS [Concomitant]

REACTIONS (2)
  - CONVULSION [None]
  - MUSCLE SPASMS [None]
